FAERS Safety Report 5051749-1 (Version None)
Quarter: 2006Q3

REPORT INFORMATION
  Report Type: 
  Country: None (occurrence: None)
  Receive Date: 20060713
  Receipt Date: 20060713
  Transmission Date: 20061208
  Serious: Yes (Life-Threatening, Hospitalization)
  Sender: FDA-Public Use
  Company Number: None

PATIENT
  Sex: Female

DRUGS (3)
  1. OXCARBAZEPINE [Suspect]
     Indication: NEUTROPENIA
  2. DIPHENHYDRAMINE HCL [Concomitant]
  3. ATARAX [Concomitant]

REACTIONS (6)
  - DECREASED APPETITE [None]
  - MYALGIA [None]
  - ORAL INTAKE REDUCED [None]
  - PYREXIA [None]
  - RASH ERYTHEMATOUS [None]
  - RASH PRURITIC [None]
